FAERS Safety Report 9921510 (Version 4)
Quarter: 2014Q2

REPORT INFORMATION
  Report Type: Spontaneous
  Country: US (occurrence: US)
  Receive Date: 20140225
  Receipt Date: 20140415
  Transmission Date: 20141212
  Serious: No
  Sender: FDA-Public Use
  Company Number: US-PFIZER INC-2014051048

PATIENT
  Sex: Female

DRUGS (2)
  1. CYTOMEL [Suspect]
     Dosage: 25 UG, UNK
  2. SYNTHROID [Suspect]
     Dosage: 150 UG, UNK

REACTIONS (5)
  - Weight decreased [Unknown]
  - Abdominal distension [Unknown]
  - Blood count abnormal [Unknown]
  - Oedema [Unknown]
  - Therapeutic response changed [Unknown]
